FAERS Safety Report 6583272-7 (Version None)
Quarter: 2010Q1

REPORT INFORMATION
  Report Type: 
  Country: None (occurrence: None)
  Receive Date: 20100216
  Receipt Date: 20100209
  Transmission Date: 20100710
  Serious: Yes (Other)
  Sender: FDA-Public Use
  Company Number: B0459727A

PATIENT
  Age: 68 Year
  Sex: Male
  Weight: 78 kg

DRUGS (10)
  1. DIGOXIN [Suspect]
     Dosage: .125MG PER DAY
     Route: 065
  2. FUROSEMIDE [Suspect]
     Dosage: 160MG PER DAY
     Route: 065
  3. FUROSEMIDE [Suspect]
     Dosage: 120MG PER DAY
  4. ASPIRIN [Suspect]
     Dosage: 75MG PER DAY
     Route: 065
  5. ACIPIMOX [Suspect]
     Dosage: 500MG PER DAY
     Route: 065
  6. AMIODARONE HCL [Suspect]
     Dosage: 200MG PER DAY
     Route: 065
  7. BISOPROLOL [Suspect]
     Dosage: 7.5MG PER DAY
     Route: 065
  8. EZETROL [Suspect]
     Dosage: 10MG PER DAY
     Route: 065
  9. LANSOPRAZOLE [Suspect]
     Dosage: 30MG PER DAY
     Route: 065
  10. PERINDOPRIL [Suspect]
     Dosage: 2MG PER DAY
     Route: 065

REACTIONS (12)
  - ATRIAL FIBRILLATION [None]
  - CARDIAC MURMUR [None]
  - DIZZINESS [None]
  - DRUG INEFFECTIVE [None]
  - DYSPNOEA [None]
  - FATIGUE [None]
  - FEELING ABNORMAL [None]
  - LEFT VENTRICULAR DYSFUNCTION [None]
  - OEDEMA [None]
  - PARAESTHESIA [None]
  - VENOUS PRESSURE JUGULAR INCREASED [None]
  - VENTRICULAR TACHYCARDIA [None]
